FAERS Safety Report 9924488 (Version 1)
Quarter: 2014Q1

REPORT INFORMATION
  Report Type: Not Available
  Country: DE (occurrence: DE)
  Receive Date: 20140226
  Receipt Date: 20140226
  Transmission Date: 20141002
  Serious: Yes (Hospitalization)
  Sender: FDA-Public Use
  Company Number: DE-ASTELLAS-2014EU001551

PATIENT
  Age: 65 Year
  Sex: Male
  Weight: 72 kg

DRUGS (1)
  1. XTANDI [Suspect]
     Indication: PROSTATE CANCER
     Dosage: 160 MG, UNKNOWN/D
     Route: 048
     Dates: start: 20140128

REACTIONS (2)
  - Tumour lysis syndrome [Unknown]
  - Hyperuricaemia [Unknown]
